FAERS Safety Report 18065391 (Version 1)
Quarter: 2020Q3

REPORT INFORMATION
  Report Type: Spontaneous
  Country: US (occurrence: US)
  Receive Date: 20200724
  Receipt Date: 20200724
  Transmission Date: 20201103
  Serious: Yes (Hospitalization, Other)
  Sender: FDA-Public Use
  Company Number: None

PATIENT
  Age: 41 Year
  Sex: Male
  Weight: 101.25 kg

DRUGS (12)
  1. EQUATE HAND SANITIZER [Suspect]
     Active Substance: ALCOHOL
     Indication: INFECTION PROPHYLAXIS
     Route: 061
     Dates: start: 20200610, end: 20200722
  2. MAGNESIUM [Concomitant]
     Active Substance: MAGNESIUM
  3. TOPROL XL [Concomitant]
     Active Substance: METOPROLOL SUCCINATE
  4. RYTHMOL SR [Concomitant]
     Active Substance: PROPAFENONE HYDROCHLORIDE
  5. B12 IM [Concomitant]
  6. INJECTAFER [Concomitant]
     Active Substance: FERRIC CARBOXYMALTOSE
  7. VITAMIN D3 [Concomitant]
     Active Substance: CHOLECALCIFEROL
  8. ASPIRIN. [Concomitant]
     Active Substance: ASPIRIN
  9. DEPO TESTOSTERONE [Concomitant]
     Active Substance: TESTOSTERONE
  10. IRON [Concomitant]
     Active Substance: IRON
  11. CALCIUM [Concomitant]
     Active Substance: CALCIUM
  12. POTASSIUM [Concomitant]
     Active Substance: POTASSIUM

REACTIONS (10)
  - Cardiac electrophysiologic study abnormal [None]
  - Abdominal pain [None]
  - Product storage error [None]
  - Suspected product contamination [None]
  - Vascular occlusion [None]
  - Acidosis [None]
  - Product odour abnormal [None]
  - Recalled product administered [None]
  - Nervous system disorder [None]
  - Product formulation issue [None]

NARRATIVE: CASE EVENT DATE: 20200719
